FAERS Safety Report 6246734-8 (Version None)
Quarter: 2009Q2

REPORT INFORMATION
  Report Type: 
  Country: None (occurrence: None)
  Receive Date: 20090626
  Receipt Date: 20090617
  Transmission Date: 20091009
  Serious: Yes (Death)
  Sender: FDA-Public Use
  Company Number: HK-PFIZER INC-2009228743

PATIENT
  Age: 78 Year

DRUGS (14)
  1. BLINDED *NO SUBJECT DRUG [Suspect]
     Indication: CARDIAC FAILURE CHRONIC
  2. BLINDED *PLACEBO [Suspect]
     Indication: CARDIAC FAILURE CHRONIC
  3. BLINDED EPLERENONE [Suspect]
     Indication: CARDIAC FAILURE CHRONIC
  4. RAMIPRIL [Concomitant]
     Dosage: UNK
     Route: 048
     Dates: start: 20071115
  5. POTASSIUM CHLORIDE [Concomitant]
     Dosage: UNK
     Route: 048
     Dates: start: 20071215
  6. ASPIRIN [Concomitant]
     Dosage: UNK
     Route: 048
     Dates: start: 20071113
  7. FRUSEMIDE [Concomitant]
     Dosage: UNK
     Route: 048
     Dates: start: 20071203
  8. BISOPROLOL [Concomitant]
     Dosage: UNK
     Route: 048
     Dates: start: 20071203
  9. ATORVASTATIN [Concomitant]
     Dosage: UNK
     Route: 048
     Dates: start: 20080109
  10. RABEPRAZOLE SODIUM [Concomitant]
     Dosage: UNK
     Route: 048
     Dates: start: 20080109
  11. DIPYRIDAMOLE [Concomitant]
     Dosage: UNK
     Route: 061
     Dates: start: 20080102
  12. DONEPEZIL HYDROCHLORIDE [Concomitant]
     Dosage: UNK
     Route: 061
     Dates: start: 20090408
  13. CYANOCOBALAMIN [Concomitant]
     Dosage: UNK
     Route: 051
     Dates: start: 20090408
  14. GLYCERYL TRINITRATE [Suspect]
     Dosage: UNK
     Route: 060
     Dates: start: 20071203

REACTIONS (1)
  - SUDDEN DEATH [None]
